FAERS Safety Report 10413162 (Version 2)
Quarter: 2014Q3

REPORT INFORMATION
  Report Type: Spontaneous
  Country: US (occurrence: US)
  Receive Date: 20140827
  Receipt Date: 20140827
  Transmission Date: 20150326
  Serious: Yes (Hospitalization, Other)
  Sender: FDA-Public Use
  Company Number: US-009507513-2010SP000796

PATIENT
  Sex: Female
  Weight: 61.24 kg

DRUGS (2)
  1. HEPARIN [Suspect]
     Active Substance: HEPARIN SODIUM
     Indication: CEREBROVASCULAR ACCIDENT
     Dates: start: 2006
  2. NUVARING [Suspect]
     Active Substance: ETHINYL ESTRADIOL\ETONOGESTREL
     Indication: MENORRHAGIA
     Dosage: UNK
     Route: 067
     Dates: start: 200510, end: 200602

REACTIONS (11)
  - Brain neoplasm [Unknown]
  - Hyperlipidaemia [Unknown]
  - Hypercoagulation [Unknown]
  - Cerebrovascular accident [Recovered/Resolved with Sequelae]
  - Hypertension [Not Recovered/Not Resolved]
  - Depression [Unknown]
  - Respiratory failure [Unknown]
  - Cerebral haemorrhage [Unknown]
  - Cyst [Unknown]
  - Off label use [Recovered/Resolved]
  - Urinary tract infection [Not Recovered/Not Resolved]

NARRATIVE: CASE EVENT DATE: 200510
